FAERS Safety Report 7324742-3 (Version None)
Quarter: 2011Q1

REPORT INFORMATION
  Report Type: 
  Country: None (occurrence: None)
  Receive Date: 20110301
  Receipt Date: 20110216
  Transmission Date: 20110831
  Serious: Yes (Other)
  Sender: FDA-Public Use
  Company Number: US-ELI_LILLY_AND_COMPANY-US201102005058

PATIENT
  Age: 58 Year
  Sex: Male

DRUGS (2)
  1. ANALGESICS [Concomitant]
     Indication: BACK PAIN
  2. CIALIS [Suspect]
     Indication: ERECTILE DYSFUNCTION
     Dosage: 10 MG, WEEKLY (1/W)
     Dates: start: 20100201

REACTIONS (2)
  - BLOOD PRESSURE INCREASED [None]
  - PAPILLOEDEMA [None]
